FAERS Safety Report 9015136 (Version 2)
Quarter: 2013Q3

REPORT INFORMATION
  Report Type: Spontaneous
  Country: US (occurrence: None)
  Receive Date: 20130103
  Receipt Date: 20130830
  Transmission Date: 20140515
  Serious: Yes (Death)
  Sender: FDA-Public Use
  Company Number: 1212-836

PATIENT
  Sex: 0

DRUGS (1)
  1. EYLEA [Suspect]

REACTIONS (2)
  - Death [None]
  - Lung neoplasm malignant [None]
